FAERS Safety Report 24928684 (Version 2)
Quarter: 2025Q1

REPORT INFORMATION
  Report Type: Report from Study
  Country: US (occurrence: US)
  Receive Date: 20250205
  Receipt Date: 20250307
  Transmission Date: 20250409
  Serious: No
  Sender: SANDOZ
  Company Number: US-SANDOZ-SDZ2025US004235

PATIENT
  Age: 15 Year
  Sex: Male

DRUGS (4)
  1. OMNITROPE [Suspect]
     Active Substance: SOMATROPIN
     Indication: Short stature
     Dosage: 0.72 ML, QD 5.8 MG VIAL, 5 MG/ML
     Route: 058
     Dates: start: 20250117
  2. OMNITROPE [Suspect]
     Active Substance: SOMATROPIN
     Indication: Short stature
     Dosage: 0.72 ML, QD 5.8 MG VIAL, 5 MG/ML
     Route: 058
     Dates: start: 20250117
  3. OMNITROPE [Suspect]
     Active Substance: SOMATROPIN
     Indication: Short stature
     Dosage: 0.72 ML, QD
     Route: 058
     Dates: start: 20250123
  4. OMNITROPE [Suspect]
     Active Substance: SOMATROPIN
     Indication: Short stature
     Dosage: 0.72 ML, QD
     Route: 058
     Dates: start: 20250123

REACTIONS (6)
  - Body fat disorder [Unknown]
  - Injection site mass [Recovered/Resolved]
  - Injection site swelling [Unknown]
  - Product preparation issue [Unknown]
  - Product use complaint [Unknown]
  - Product quality issue [Unknown]

NARRATIVE: CASE EVENT DATE: 20250123
